FAERS Safety Report 7942369-7 (Version None)
Quarter: 2011Q4

REPORT INFORMATION
  Report Type: 
  Country: None (occurrence: None)
  Receive Date: 20111128
  Receipt Date: 20111117
  Transmission Date: 20120403
  Serious: Yes (Death)
  Sender: FDA-Public Use
  Company Number: US-CELGENEUS-163-21880-11112915

PATIENT
  Sex: Male
  Weight: 79.45 kg

DRUGS (10)
  1. DIGOXIN [Concomitant]
     Route: 065
  2. TRAZODONE HCL [Concomitant]
     Route: 065
  3. AMBIEN [Concomitant]
     Route: 065
  4. REVLIMID [Suspect]
     Indication: MYELODYSPLASTIC SYNDROME
     Dosage: 10 MILLIGRAM
     Route: 048
     Dates: start: 20110915
  5. POTASSIUM ACETATE [Concomitant]
     Route: 065
  6. BENICAR [Concomitant]
     Route: 065
  7. FOLIC ACID [Concomitant]
     Route: 065
  8. REGLAN [Concomitant]
     Route: 065
  9. SPIRONOLACTONE [Concomitant]
     Route: 065
  10. ATROVENT [Concomitant]
     Route: 065

REACTIONS (1)
  - DEATH [None]
